FAERS Safety Report 8033939-9 (Version None)
Quarter: 2012Q1

REPORT INFORMATION
  Report Type: 
  Country: None (occurrence: None)
  Receive Date: 20120110
  Receipt Date: 20120110
  Transmission Date: 20120608
  Serious: Yes (Other)
  Sender: FDA-Public Use
  Company Number: US-PFIZER INC-2012003957

PATIENT
  Sex: Male

DRUGS (6)
  1. ROFLUMILAST [Concomitant]
     Dosage: UNK
  2. KETOPROFEN [Concomitant]
     Dosage: UNK
  3. CHANTIX [Suspect]
     Dosage: UNK
  4. LOSARTAN [Concomitant]
     Dosage: UNK
  5. CELEBREX [Suspect]
     Indication: PROCEDURAL PAIN
     Dosage: UNK
  6. PREVACID [Concomitant]
     Dosage: UNK

REACTIONS (7)
  - AGITATION [None]
  - HEART RATE INCREASED [None]
  - GASTRIC DISORDER [None]
  - HYPERTENSION [None]
  - ARTHROPATHY [None]
  - ARTHRITIS [None]
  - DRUG INEFFECTIVE [None]
